FAERS Safety Report 5162957-3 (Version None)
Quarter: 2006Q4

REPORT INFORMATION
  Report Type: 
  Country: None (occurrence: None)
  Receive Date: 20061201
  Receipt Date: 20061122
  Transmission Date: 20070319
  Serious: Yes (Death, Hospitalization, Other)
  Sender: FDA-Public Use
  Company Number: GB-BRISTOL-MYERS SQUIBB COMPANY-13587878

PATIENT
  Age: 63 Year
  Sex: Female

DRUGS (5)
  1. CISPLATIN [Suspect]
     Indication: VAGINAL CANCER
     Route: 042
     Dates: start: 20060901
  2. DULCOLAX [Concomitant]
  3. GAVISCON [Concomitant]
  4. LOPERAMIDE [Concomitant]
  5. ONDANSETRON [Concomitant]

REACTIONS (4)
  - BLINDNESS CORTICAL [None]
  - CONFUSIONAL STATE [None]
  - ENCEPHALITIS [None]
  - SEPSIS [None]
